FAERS Safety Report 9855758 (Version 2)
Quarter: 2014Q2

REPORT INFORMATION
  Report Type: Spontaneous
  Country: US (occurrence: US)
  Receive Date: 20140130
  Receipt Date: 20140422
  Transmission Date: 20141212
  Serious: No
  Sender: FDA-Public Use
  Company Number: US-B.I. PHARMACEUTICALS,INC./RIDGEFIELD-2014-BI-03048BP

PATIENT
  Age: 60 Year
  Sex: Female

DRUGS (5)
  1. AGGRENOX [Suspect]
     Indication: CEREBROVASCULAR ACCIDENT PROPHYLAXIS
     Dosage: STRENGTH: 25 MG / 200 MG; DAILY DOSE: 50 MG / 400 MG
     Route: 048
     Dates: start: 201310
  2. CLOZAPINE [Concomitant]
     Indication: HYPERTENSION
     Route: 048
  3. ASPIRIN [Concomitant]
     Route: 048
  4. CLONIDINE [Concomitant]
     Route: 048
  5. MICARDIS [Concomitant]
     Route: 048

REACTIONS (4)
  - Abdominal pain upper [Not Recovered/Not Resolved]
  - Abdominal distension [Not Recovered/Not Resolved]
  - Abdominal distension [Unknown]
  - Abdominal discomfort [Unknown]
